FAERS Safety Report 8331499-6 (Version None)
Quarter: 2012Q2

REPORT INFORMATION
  Report Type: 
  Country: None (occurrence: None)
  Receive Date: 20120502
  Receipt Date: 20120418
  Transmission Date: 20120825
  Serious: Yes (Other)
  Sender: FDA-Public Use
  Company Number: US-FRI-1000030157

PATIENT

DRUGS (1)
  1. CITALOPRAM [Suspect]
     Dosage: 10-40 MG

REACTIONS (2)
  - OFF LABEL USE [None]
  - CONDUCTION DISORDER [None]
